FAERS Safety Report 5597358-7 (Version None)
Quarter: 2008Q1

REPORT INFORMATION
  Report Type: 
  Country: None (occurrence: None)
  Receive Date: 20080121
  Receipt Date: 20080104
  Transmission Date: 20080703
  Serious: Yes (Hospitalization)
  Sender: FDA-Public Use
  Company Number: CAWYE938508MAR07

PATIENT
  Sex: Male
  Weight: 94.7 kg

DRUGS (13)
  1. SIROLIMUS [Suspect]
     Indication: RENAL TRANSPLANT
     Route: 048
     Dates: start: 20061005, end: 20070308
  2. SIROLIMUS [Suspect]
     Dosage: 4-12 MG
     Route: 048
     Dates: start: 20070309
  3. LIPITOR [Concomitant]
     Indication: DYSLIPIDAEMIA
     Dosage: 40 MG
     Route: 048
     Dates: start: 20060101
  4. NORVASC [Concomitant]
     Indication: HYPERTENSION
     Dosage: 10 MG
     Route: 048
     Dates: start: 20050101
  5. PREDNISONE [Concomitant]
     Indication: RENAL TRANSPLANT
     Dosage: 7.5 MG
     Route: 048
     Dates: start: 20060524, end: 20070308
  6. PANTOLOC [Concomitant]
     Indication: PROPHYLAXIS
     Route: 048
     Dates: start: 20060501
  7. LANTUS [Concomitant]
     Indication: DIABETES MELLITUS
     Dosage: 32 IU
     Route: 058
     Dates: start: 20060501
  8. MONOPRIL [Concomitant]
     Indication: HYPERTENSION
     Route: 048
     Dates: start: 20070209
  9. ASPIRIN [Concomitant]
     Indication: PROPHYLAXIS
     Route: 048
     Dates: start: 20070101
  10. LOPRESSOR [Concomitant]
     Indication: HYPERTENSION
     Route: 048
     Dates: start: 20061103
  11. IMDUR [Concomitant]
     Indication: ANGINA PECTORIS
     Route: 048
     Dates: start: 20070101
  12. CELLCEPT [Concomitant]
     Indication: RENAL TRANSPLANT
     Dosage: 2 GRAMS
     Route: 048
     Dates: start: 20060524
  13. NOVORAPID [Concomitant]
     Indication: DIABETES MELLITUS
     Dosage: 2-10 UNITS PRN
     Route: 058
     Dates: start: 20060501

REACTIONS (1)
  - KIDNEY TRANSPLANT REJECTION [None]
